FAERS Safety Report 21401273 (Version 1)
Quarter: 2022Q4

REPORT INFORMATION
  Report Type: Spontaneous
  Country: CN (occurrence: CN)
  Receive Date: 20221003
  Receipt Date: 20221003
  Transmission Date: 20230113
  Serious: Yes (Other)
  Sender: FDA-Public Use
  Company Number: None

PATIENT
  Age: 44 Year
  Sex: Female
  Weight: 73 kg

DRUGS (6)
  1. CYCLOPHOSPHAMIDE [Suspect]
     Active Substance: CYCLOPHOSPHAMIDE
     Indication: Breast cancer female
     Dosage: 1000 MG, QD (AC REGIMEN, THIRD CYCLE CHEMOTHERAPY, DAY 1, DILUTED WITH SODIUM CHLORIDE 100 ML)
     Route: 041
     Dates: start: 20220908, end: 20220908
  2. SODIUM CHLORIDE [Suspect]
     Active Substance: SODIUM CHLORIDE
     Indication: Medication dilution
     Dosage: 100 ML, QD (DAY 1, DILUTED WITH CYCLOPHOSPHAMIDE 1000 MG)
     Route: 041
     Dates: start: 20220908, end: 20220908
  3. SODIUM CHLORIDE [Suspect]
     Active Substance: SODIUM CHLORIDE
     Dosage: 100 ML, QD (D1, DILUTED WITH EPIRUBICIN HYDROCHLORIDE 150 MG)
     Route: 041
     Dates: start: 20220908, end: 20220908
  4. EPIRUBICIN HYDROCHLORIDE [Suspect]
     Active Substance: EPIRUBICIN HYDROCHLORIDE
     Indication: Breast cancer female
     Dosage: 150 MG, QD (DAY 1, AC REGIMEN THIRD CYCLE CHEMOTHERAPY, DILUTED WITH SODIUM CHLORIDE 100 ML)
     Route: 041
     Dates: start: 20220908, end: 20220908
  5. TIOPRONIN [Concomitant]
     Active Substance: TIOPRONIN
     Indication: Prophylaxis
     Dosage: 0.2 G (DILUTED WITH SODIUM CHLORIDE 250 ML)
     Route: 041
     Dates: start: 20220907
  6. SODIUM CHLORIDE [Concomitant]
     Active Substance: SODIUM CHLORIDE
     Indication: Medication dilution
     Dosage: 250 ML (DILUTED WITH TROPRONIN 0.2 G)
     Route: 041
     Dates: start: 20220907

REACTIONS (2)
  - Liver injury [Recovering/Resolving]
  - Hepatic function abnormal [Recovering/Resolving]

NARRATIVE: CASE EVENT DATE: 20220909
